FAERS Safety Report 8984001 (Version 1)
Quarter: 2012Q4

REPORT INFORMATION
  Report Type: Spontaneous
  Country: US (occurrence: None)
  Receive Date: 20121218
  Receipt Date: 20121218
  Transmission Date: 20130627
  Serious: Yes (Disabling)
  Sender: FDA-Public Use
  Company Number: None

PATIENT
  Age: 34 Year
  Sex: Male
  Weight: 91.4 kg

DRUGS (2)
  1. FERRIPROX [Suspect]
     Indication: IRON OVERLOAD
     Dosage: 4 caps morning and night po
     Route: 048
     Dates: start: 20121125, end: 20121206
  2. FERRIPROX [Suspect]
     Indication: IRON OVERLOAD
     Dosage: 5 caps mid day po
     Route: 048

REACTIONS (2)
  - Fatigue [None]
  - Somnolence [None]
